FAERS Safety Report 17545870 (Version 8)
Quarter: 2023Q1

REPORT INFORMATION
  Report Type: Spontaneous
  Country: GR (occurrence: GR)
  Receive Date: 20200316
  Receipt Date: 20230313
  Transmission Date: 20230417
  Serious: Yes (Hospitalization, Other)
  Sender: FDA-Public Use
  Company Number: GR-ROCHE-2528781

PATIENT
  Sex: Female
  Weight: 60 kg

DRUGS (121)
  1. NORVASC [Suspect]
     Active Substance: AMLODIPINE BESYLATE
     Indication: Leukopenia
     Dosage: 5 MG, 1 CYCLE
     Route: 048
     Dates: start: 20190515, end: 20190516
  2. NORVASC [Suspect]
     Active Substance: AMLODIPINE BESYLATE
     Indication: Hypertension
     Dosage: UNK
     Route: 058
  3. NORVASC [Suspect]
     Active Substance: AMLODIPINE BESYLATE
     Indication: Anaemia
     Dosage: UNK
     Route: 058
  4. NORVASC [Suspect]
     Active Substance: AMLODIPINE BESYLATE
     Indication: Diffuse large B-cell lymphoma
  5. NORVASC [Suspect]
     Active Substance: AMLODIPINE BESYLATE
     Indication: Non-Hodgkin^s lymphoma
  6. DOXORUBICIN [Suspect]
     Active Substance: DOXORUBICIN
     Indication: Non-Hodgkin^s lymphoma
     Dosage: 75 MG, CYCLE/75 MG, 8 CYCLES
     Route: 042
     Dates: start: 20190513, end: 20191009
  7. DOXORUBICIN [Suspect]
     Active Substance: DOXORUBICIN
     Indication: Diffuse large B-cell lymphoma
     Dosage: UNK
     Route: 058
  8. DOXORUBICIN [Suspect]
     Active Substance: DOXORUBICIN
     Indication: Anaemia
     Dosage: UNK
     Route: 065
  9. DOXORUBICIN [Suspect]
     Active Substance: DOXORUBICIN
     Indication: Hypertension
  10. DOXORUBICIN [Suspect]
     Active Substance: DOXORUBICIN
     Indication: Leukopenia
  11. CYTARABINE [Suspect]
     Active Substance: CYTARABINE
     Indication: Non-Hodgkin^s lymphoma
     Dosage: UNK
     Route: 065
  12. CYTARABINE [Suspect]
     Active Substance: CYTARABINE
     Indication: Diffuse large B-cell lymphoma
  13. CYTARABINE [Suspect]
     Active Substance: CYTARABINE
     Indication: Anaemia
  14. CYTARABINE [Suspect]
     Active Substance: CYTARABINE
     Indication: Hypertension
  15. CYTARABINE [Suspect]
     Active Substance: CYTARABINE
     Indication: Leukopenia
  16. NORVASC [Suspect]
     Active Substance: AMLODIPINE BESYLATE
     Indication: Hypertension
     Dosage: UNK
     Route: 065
  17. CHLORPHENIRAMINE MALEATE [Suspect]
     Active Substance: CHLORPHENIRAMINE MALEATE
     Indication: Non-Hodgkin^s lymphoma
     Dosage: UNK
     Route: 042
  18. CHLORPHENIRAMINE MALEATE [Suspect]
     Active Substance: CHLORPHENIRAMINE MALEATE
     Indication: Product used for unknown indication
     Dosage: UNK UNK, 1CYCLE
     Route: 048
     Dates: start: 20200110, end: 20200112
  19. CHLORPHENIRAMINE MALEATE [Suspect]
     Active Substance: CHLORPHENIRAMINE MALEATE
     Indication: Leukopenia
     Dosage: UNK
     Route: 065
  20. CHLORPHENIRAMINE MALEATE [Suspect]
     Active Substance: CHLORPHENIRAMINE MALEATE
     Indication: Anaemia
     Dosage: CYCLE (1 CYCLE) START DATE: 10-JAN-2020
     Route: 048
     Dates: end: 20200112
  21. CHLORPHENIRAMINE MALEATE [Suspect]
     Active Substance: CHLORPHENIRAMINE MALEATE
     Indication: Hypertension
     Dosage: UNK
     Route: 048
  22. CHLORPHENIRAMINE MALEATE [Suspect]
     Active Substance: CHLORPHENIRAMINE MALEATE
     Indication: Diffuse large B-cell lymphoma
  23. CHLORPHENIRAMINE MALEATE [Suspect]
     Active Substance: CHLORPHENIRAMINE MALEATE
     Indication: Non-Hodgkin^s lymphoma
  24. ERYTHROPOIETIN [Suspect]
     Active Substance: ERYTHROPOIETIN
     Indication: Anaemia
     Dosage: UNK UNK, CYCLE
     Route: 058
     Dates: start: 20190523, end: 20200124
  25. CANCIDAS [Suspect]
     Active Substance: CASPOFUNGIN ACETATE
     Indication: Non-Hodgkin^s lymphoma
     Dosage: 50 MILLIGRAM,UNKNOWN
     Route: 042
     Dates: start: 20200105, end: 20200113
  26. CANCIDAS [Suspect]
     Active Substance: CASPOFUNGIN ACETATE
     Indication: Diffuse large B-cell lymphoma
     Dosage: UNK
     Route: 065
  27. CANCIDAS [Suspect]
     Active Substance: CASPOFUNGIN ACETATE
     Indication: Hypertension
  28. CANCIDAS [Suspect]
     Active Substance: CASPOFUNGIN ACETATE
     Indication: Leukopenia
  29. CANCIDAS [Suspect]
     Active Substance: CASPOFUNGIN ACETATE
     Indication: Anaemia
  30. RITUXIMAB [Suspect]
     Active Substance: RITUXIMAB
     Indication: Diffuse large B-cell lymphoma
     Dosage: UNK UNK, CYCLE/2 CYCLES
     Route: 042
     Dates: start: 20191113, end: 20191223
  31. RITUXIMAB [Suspect]
     Active Substance: RITUXIMAB
     Indication: Non-Hodgkin^s lymphoma
     Dosage: UNK UNK, CYCLE/8 CYCLES
     Route: 042
     Dates: start: 20190513, end: 20191013
  32. RITUXIMAB [Suspect]
     Active Substance: RITUXIMAB
     Dosage: UNK UNK, CYCLE/3 CYCLES
     Route: 058
     Dates: start: 20190513, end: 20190625
  33. RITUXIMAB [Suspect]
     Active Substance: RITUXIMAB
     Dosage: 1400 MILLIGRAM
     Route: 058
     Dates: start: 20191113, end: 20191210
  34. RITUXIMAB [Suspect]
     Active Substance: RITUXIMAB
     Dosage: UNK
     Route: 065
  35. CISPLATIN [Suspect]
     Active Substance: CISPLATIN
     Indication: Non-Hodgkin^s lymphoma
     Dosage: 38 MG, CYCLE/38 MG,2 CYCLES
     Route: 042
     Dates: start: 20191119, end: 20200113
  36. CISPLATIN [Suspect]
     Active Substance: CISPLATIN
     Indication: Diffuse large B-cell lymphoma
     Dosage: UNK
     Route: 058
  37. CISPLATIN [Suspect]
     Active Substance: CISPLATIN
     Dosage: UNK
     Route: 042
  38. ALDACTONE [Suspect]
     Active Substance: SPIRONOLACTONE
     Indication: Non-Hodgkin^s lymphoma
     Dosage: 100 MILLIGRAM, CYCLE
     Route: 048
     Dates: start: 20200105, end: 20200112
  39. ALDACTONE [Suspect]
     Active Substance: SPIRONOLACTONE
     Indication: Anaemia
     Dosage: UNK
     Route: 065
  40. ALDACTONE [Suspect]
     Active Substance: SPIRONOLACTONE
     Indication: Hypertension
     Dosage: UNK
     Route: 048
  41. ALDACTONE [Suspect]
     Active Substance: SPIRONOLACTONE
     Indication: Leukopenia
  42. ALDACTONE [Suspect]
     Active Substance: SPIRONOLACTONE
     Indication: Diffuse large B-cell lymphoma
  43. VEPESID [Suspect]
     Active Substance: ETOPOSIDE
     Indication: Non-Hodgkin^s lymphoma
     Dosage: UNK
     Route: 058
  44. VEPESID [Suspect]
     Active Substance: ETOPOSIDE
     Indication: Anaemia
     Dosage: 90 MG, CYCLE/90 MG,2 CYCLE
     Route: 042
     Dates: start: 20191119, end: 20200113
  45. VEPESID [Suspect]
     Active Substance: ETOPOSIDE
     Indication: Diffuse large B-cell lymphoma
     Dosage: UNK
     Route: 065
  46. VEPESID [Suspect]
     Active Substance: ETOPOSIDE
     Indication: Leukopenia
  47. VEPESID [Suspect]
     Active Substance: ETOPOSIDE
     Indication: Hypertension
  48. MABTHERA [Suspect]
     Active Substance: RITUXIMAB
     Indication: Non-Hodgkin^s lymphoma
     Dosage: 1400 MILLIGRAM, CYCLE (6 CYCLES)
     Route: 058
     Dates: start: 20190625, end: 20191009
  49. MABTHERA [Suspect]
     Active Substance: RITUXIMAB
     Indication: Diffuse large B-cell lymphoma
     Dosage: 1400 MILLIGRAM, CYCLE (1 CYCLES)
     Route: 058
     Dates: start: 20191113, end: 20191210
  50. MABTHERA [Suspect]
     Active Substance: RITUXIMAB
     Indication: Leukopenia
     Dosage: 650 MILLIGRAM
     Route: 042
     Dates: start: 20191222, end: 20200113
  51. MABTHERA [Suspect]
     Active Substance: RITUXIMAB
     Indication: Hypertension
     Dosage: UNK
     Route: 065
  52. MABTHERA [Suspect]
     Active Substance: RITUXIMAB
     Indication: Anaemia
  53. VALTREX [Suspect]
     Active Substance: VALACYCLOVIR HYDROCHLORIDE
     Indication: Non-Hodgkin^s lymphoma
     Dosage: UNK
     Route: 058
  54. VALTREX [Suspect]
     Active Substance: VALACYCLOVIR HYDROCHLORIDE
     Indication: Anaemia
     Dosage: UNK
     Route: 042
  55. VALTREX [Suspect]
     Active Substance: VALACYCLOVIR HYDROCHLORIDE
     Indication: Diffuse large B-cell lymphoma
     Dosage: UNK
     Route: 065
  56. VALTREX [Suspect]
     Active Substance: VALACYCLOVIR HYDROCHLORIDE
     Indication: Leukopenia
  57. VALTREX [Suspect]
     Active Substance: VALACYCLOVIR HYDROCHLORIDE
     Indication: Hypertension
  58. LOSEC [Suspect]
     Active Substance: OMEPRAZOLE
     Indication: Non-Hodgkin^s lymphoma
     Dosage: UNK, CYCLE (UNK (1 CYCLES TWICE)
     Route: 042
     Dates: start: 20191223, end: 20200113
  59. LOSEC [Suspect]
     Active Substance: OMEPRAZOLE
     Indication: Diffuse large B-cell lymphoma
     Dosage: UNK
     Route: 065
  60. LOSEC [Suspect]
     Active Substance: OMEPRAZOLE
     Indication: Leukopenia
  61. LOSEC [Suspect]
     Active Substance: OMEPRAZOLE
     Indication: Hypertension
  62. LOSEC [Suspect]
     Active Substance: OMEPRAZOLE
     Indication: Anaemia
  63. RITUXAN HYCELA [Suspect]
     Active Substance: HYALURONIDASE (HUMAN RECOMBINANT)\RITUXIMAB
     Indication: Diffuse large B-cell lymphoma
     Dosage: UNK, CYCLE (3 CYCLES)
     Route: 058
     Dates: start: 20190513, end: 20190625
  64. FILGRASTIM [Suspect]
     Active Substance: FILGRASTIM
     Indication: Leukopenia
     Dosage: UNK
     Route: 058
     Dates: start: 20190523, end: 20200117
  65. FILGRASTIM [Suspect]
     Active Substance: FILGRASTIM
     Indication: Non-Hodgkin^s lymphoma
     Dosage: UNK
     Route: 065
  66. FILGRASTIM [Suspect]
     Active Substance: FILGRASTIM
     Indication: Anaemia
  67. FILGRASTIM [Suspect]
     Active Substance: FILGRASTIM
     Indication: Hypertension
  68. FILGRASTIM [Suspect]
     Active Substance: FILGRASTIM
     Indication: Diffuse large B-cell lymphoma
  69. CYTARABINE [Suspect]
     Active Substance: CYTARABINE
     Indication: Non-Hodgkin^s lymphoma
     Dosage: 3 GRAM, CYCLE/3 GRAM (2 CYCLES)
     Route: 042
     Dates: start: 20191123, end: 20200113
  70. CYTARABINE [Suspect]
     Active Substance: CYTARABINE
     Indication: Diffuse large B-cell lymphoma
     Dosage: UNK
     Route: 042
  71. CYTARABINE [Suspect]
     Active Substance: CYTARABINE
     Dosage: UNK
     Route: 058
  72. CUBICIN [Suspect]
     Active Substance: DAPTOMYCIN
     Indication: Non-Hodgkin^s lymphoma
     Dosage: 350 MG, CYCLE (350 MILLIGRAM (1 CYCLE)
     Route: 042
     Dates: start: 20200102, end: 20200113
  73. CUBICIN [Suspect]
     Active Substance: DAPTOMYCIN
     Indication: Hypertension
     Dosage: UNK
     Route: 065
  74. CUBICIN [Suspect]
     Active Substance: DAPTOMYCIN
     Indication: Leukopenia
  75. CUBICIN [Suspect]
     Active Substance: DAPTOMYCIN
     Indication: Anaemia
  76. CUBICIN [Suspect]
     Active Substance: DAPTOMYCIN
     Indication: Diffuse large B-cell lymphoma
  77. CISPLATIN\CYTARABINE\ETOPOSIDE\METHYLPREDNISOLONE (ESHAP) [Suspect]
     Active Substance: CISPLATIN\CYTARABINE\ETOPOSIDE\METHYLPREDNISOLONE (ESHAP)
     Indication: Diffuse large B-cell lymphoma
     Dosage: UNK, CYCLE/UNK (2 CYCLES)
     Route: 065
     Dates: start: 20191113, end: 20191223
  78. CYCLOPHOSPHAMIDE\DOXORUBICIN\PREDNISONE\VINCRISTINE [Suspect]
     Active Substance: CYCLOPHOSPHAMIDE\DOXORUBICIN\PREDNISONE\VINCRISTINE
     Indication: Diffuse large B-cell lymphoma
     Dosage: UNK, CYCLE (8 CYCLES)
     Route: 065
     Dates: start: 20190513, end: 20191013
  79. MEROPENEM [Suspect]
     Active Substance: MEROPENEM
     Indication: Non-Hodgkin^s lymphoma
     Dosage: 2 GRAM (2 GRAM, 1 CYCLE 2GX3)
     Route: 042
     Dates: start: 20200103, end: 20200113
  80. MEROPENEM [Suspect]
     Active Substance: MEROPENEM
     Dosage: UNK
     Route: 065
  81. ALDACTONE [Suspect]
     Active Substance: SPIRONOLACTONE
     Indication: Non-Hodgkin^s lymphoma
     Dosage: UNK
     Route: 042
  82. VALTREX [Suspect]
     Active Substance: VALACYCLOVIR HYDROCHLORIDE
     Indication: Product used for unknown indication
     Dosage: 500 MILLIGRAM
     Route: 048
     Dates: start: 20190513, end: 20190516
  83. VALTREX [Suspect]
     Active Substance: VALACYCLOVIR HYDROCHLORIDE
     Dosage: 500 GRAM, CYCLE
     Route: 048
     Dates: start: 20200108, end: 20200113
  84. LASIX [Suspect]
     Active Substance: FUROSEMIDE
     Indication: Non-Hodgkin^s lymphoma
     Dosage: UNK UNK, CYCLE
     Route: 042
     Dates: start: 20200110, end: 20200113
  85. LASIX [Suspect]
     Active Substance: FUROSEMIDE
     Indication: Anaemia
     Dosage: UNK
     Route: 065
  86. LASIX [Suspect]
     Active Substance: FUROSEMIDE
     Indication: Hypertension
  87. LASIX [Suspect]
     Active Substance: FUROSEMIDE
     Indication: Diffuse large B-cell lymphoma
  88. LASIX [Suspect]
     Active Substance: FUROSEMIDE
     Indication: Leukopenia
  89. VINCRISTINE SULFATE [Suspect]
     Active Substance: VINCRISTINE SULFATE
     Indication: Hypertension
     Dosage: UNK
     Route: 065
  90. VINCRISTINE SULFATE [Suspect]
     Active Substance: VINCRISTINE SULFATE
     Indication: Anaemia
  91. VINCRISTINE SULFATE [Suspect]
     Active Substance: VINCRISTINE SULFATE
     Indication: Leukopenia
  92. VINCRISTINE SULFATE [Suspect]
     Active Substance: VINCRISTINE SULFATE
     Indication: Diffuse large B-cell lymphoma
  93. VINCRISTINE SULFATE [Suspect]
     Active Substance: VINCRISTINE SULFATE
     Indication: Non-Hodgkin^s lymphoma
  94. METHYLPREDNISOLONE [Suspect]
     Active Substance: METHYLPREDNISOLONE
     Indication: Diffuse large B-cell lymphoma
     Dosage: UNK
     Route: 065
  95. VALACYCLOVIR HYDROCHLORIDE [Suspect]
     Active Substance: VALACYCLOVIR HYDROCHLORIDE
     Indication: Product used for unknown indication
     Dosage: UNK
     Route: 065
  96. ERYTHROPOIETIN [Suspect]
     Active Substance: ERYTHROPOIETIN
     Indication: Hypertension
     Dosage: UNK
     Route: 065
  97. ERYTHROPOIETIN [Suspect]
     Active Substance: ERYTHROPOIETIN
     Indication: Diffuse large B-cell lymphoma
  98. ERYTHROPOIETIN [Suspect]
     Active Substance: ERYTHROPOIETIN
     Indication: Anaemia
  99. ERYTHROPOIETIN [Suspect]
     Active Substance: ERYTHROPOIETIN
     Indication: Leukopenia
  100. ERYTHROPOIETIN [Suspect]
     Active Substance: ERYTHROPOIETIN
     Indication: Non-Hodgkin^s lymphoma
  101. DAPTOMYCIN [Suspect]
     Active Substance: DAPTOMYCIN
     Indication: Product used for unknown indication
     Dosage: UNK
     Route: 065
  102. PREDNISONE [Suspect]
     Active Substance: PREDNISONE
     Indication: Leukopenia
     Dosage: UNK
     Route: 065
  103. PREDNISONE [Suspect]
     Active Substance: PREDNISONE
     Indication: Diffuse large B-cell lymphoma
  104. PREDNISONE [Suspect]
     Active Substance: PREDNISONE
     Indication: Non-Hodgkin^s lymphoma
  105. PREDNISONE [Suspect]
     Active Substance: PREDNISONE
     Indication: Anaemia
  106. PREDNISONE [Suspect]
     Active Substance: PREDNISONE
     Indication: Hypertension
  107. CYCLOPHOSPHAMIDE [Suspect]
     Active Substance: CYCLOPHOSPHAMIDE
     Indication: Diffuse large B-cell lymphoma
     Dosage: UNK
     Route: 065
  108. CYCLOPHOSPHAMIDE [Suspect]
     Active Substance: CYCLOPHOSPHAMIDE
     Indication: Anaemia
  109. CYCLOPHOSPHAMIDE [Suspect]
     Active Substance: CYCLOPHOSPHAMIDE
     Indication: Hypertension
  110. CYCLOPHOSPHAMIDE [Suspect]
     Active Substance: CYCLOPHOSPHAMIDE
     Indication: Non-Hodgkin^s lymphoma
  111. CYCLOPHOSPHAMIDE [Suspect]
     Active Substance: CYCLOPHOSPHAMIDE
     Indication: Leukopenia
  112. ALBUMIN HUMAN [Suspect]
     Active Substance: ALBUMIN HUMAN
     Indication: Hypertension
     Dosage: (100 MG, UNKNOWN,1 CYLCE 50MG X2)
     Route: 042
     Dates: start: 20200110, end: 20200113
  113. ALBUMIN HUMAN [Suspect]
     Active Substance: ALBUMIN HUMAN
     Indication: Diffuse large B-cell lymphoma
     Dosage: UNK
     Route: 065
  114. ALBUMIN HUMAN [Suspect]
     Active Substance: ALBUMIN HUMAN
     Indication: Non-Hodgkin^s lymphoma
  115. ALBUMIN HUMAN [Suspect]
     Active Substance: ALBUMIN HUMAN
     Indication: Leukopenia
  116. ALBUMIN HUMAN [Suspect]
     Active Substance: ALBUMIN HUMAN
     Indication: Anaemia
  117. LOSEC [Suspect]
     Active Substance: OMEPRAZOLE
     Indication: Non-Hodgkin^s lymphoma
     Dosage: UNK, CYCLE (1 CYCLES TWICE)
     Route: 048
     Dates: start: 20191223, end: 20200113
  118. LOSEC [Suspect]
     Active Substance: OMEPRAZOLE
     Indication: Diffuse large B-cell lymphoma
  119. LOSEC [Suspect]
     Active Substance: OMEPRAZOLE
     Indication: Leukopenia
  120. LOSEC [Suspect]
     Active Substance: OMEPRAZOLE
     Indication: Hypertension
  121. LOSEC [Suspect]
     Active Substance: OMEPRAZOLE
     Indication: Anaemia

REACTIONS (6)
  - Diffuse large B-cell lymphoma refractory [Unknown]
  - Disease progression [Unknown]
  - Neoplasm progression [Unknown]
  - Product use in unapproved indication [Unknown]
  - No adverse event [Unknown]
  - Off label use [Unknown]

NARRATIVE: CASE EVENT DATE: 20190513
